FAERS Safety Report 8764119 (Version 2)
Quarter: 2012Q4

REPORT INFORMATION
  Report Type: Spontaneous
  Country: US (occurrence: None)
  Receive Date: 20120828
  Receipt Date: 20120920
  Transmission Date: 20130627
  Serious: Yes (Other)
  Sender: FDA-Public Use
  Company Number: 1388031

PATIENT
  Age: 46 Year
  Sex: Male
  Weight: 130 kg

DRUGS (4)
  1. PRECEDEX [Suspect]
     Indication: ALCOHOL WITHDRAWAL SYNDROME
     Route: 040
  2. PRECEDEX [Suspect]
     Indication: DRUG RESISTANCE
     Route: 040
  3. PRECEDEX [Suspect]
     Indication: ALCOHOL WITHDRAWAL SYNDROME
     Route: 041
  4. PRECEDEX [Suspect]
     Indication: DRUG RESISTANCE
     Route: 041

REACTIONS (1)
  - Cardiac arrest [None]
